FAERS Safety Report 8906354 (Version 1)
Quarter: 2012Q4

REPORT INFORMATION
  Report Type: Spontaneous
  Country: US (occurrence: None)
  Receive Date: 20121109
  Receipt Date: 20121109
  Transmission Date: 20130627
  Serious: Yes (Hospitalization, Disabling)
  Sender: FDA-Public Use
  Company Number: None

PATIENT
  Age: 23 Year
  Sex: Female
  Weight: 65.77 kg

DRUGS (1)
  1. MIRENA [Suspect]
     Indication: BIRTH CONTROL
     Dates: start: 20090401, end: 20120925

REACTIONS (5)
  - Vaginal haemorrhage [None]
  - Muscle spasms [None]
  - Hypoaesthesia [None]
  - Paraesthesia [None]
  - Hypothyroidism [None]
